FAERS Safety Report 4724854-4 (Version None)
Quarter: 2005Q3

REPORT INFORMATION
  Report Type: 
  Country: None (occurrence: None)
  Receive Date: 20050726
  Receipt Date: 20050706
  Transmission Date: 20060218
  Serious: Yes (Life-Threatening, Hospitalization)
  Sender: FDA-Public Use
  Company Number: PHHO2005US10902

PATIENT
  Age: 63 Year
  Sex: Female
  Weight: 122 kg

DRUGS (14)
  1. CGP 57148B [Suspect]
     Indication: GLIOBLASTOMA MULTIFORME
     Dosage: 400 MG, QD
     Route: 048
     Dates: start: 20050606, end: 20050623
  2. RAD001 [Suspect]
     Indication: GLIOBLASTOMA MULTIFORME
     Dosage: 2.5 MG, QD
     Dates: start: 20050607, end: 20050623
  3. HYDROXYUREA [Suspect]
     Indication: GLIOBLASTOMA MULTIFORME
     Dosage: 500 MG, BID
     Route: 048
     Dates: start: 20050607, end: 20050623
  4. ACTONEL [Concomitant]
  5. KLOR-CON [Concomitant]
  6. LEVOXYL [Concomitant]
  7. NEURONTIN [Concomitant]
  8. CELEBREX [Concomitant]
  9. ZOLOFT [Concomitant]
  10. DECADRON [Concomitant]
  11. DIOVAN [Concomitant]
  12. BORAGE OIL [Concomitant]
  13. NORVASC [Concomitant]
  14. HYDROXYCHLOROQUINE SULFATE [Concomitant]

REACTIONS (9)
  - ABDOMINAL PAIN [None]
  - ARTHRALGIA [None]
  - BACTERIAL TEST POSITIVE [None]
  - COLOSTOMY [None]
  - DYSURIA [None]
  - FALL [None]
  - FEMUR FRACTURE [None]
  - RUPTURED DIVERTICULUM OF COLON [None]
  - SIGMOIDECTOMY [None]
